FAERS Safety Report 23820124 (Version 3)
Quarter: 2025Q3

REPORT INFORMATION
  Report Type: Spontaneous
  Country: EU (occurrence: EU)
  Receive Date: 20240506
  Receipt Date: 20250928
  Transmission Date: 20251020
  Serious: Yes (Hospitalization)
  Sender: JOHNSON AND JOHNSON
  Company Number: EU-JNJFOC-20240512061

PATIENT
  Age: 73 Year
  Sex: Female
  Weight: 62 kg

DRUGS (2)
  1. YONDELIS [Suspect]
     Active Substance: TRABECTEDIN
     Indication: Leiomyosarcoma metastatic
     Dosage: CYCLE 1 DAY 1
     Route: 042
     Dates: start: 20240301, end: 20240301
  2. DOXORUBICIN HYDROCHLORIDE [Suspect]
     Active Substance: DOXORUBICIN HYDROCHLORIDE
     Indication: Leiomyosarcoma metastatic
     Route: 042
     Dates: start: 20240301, end: 20240301

REACTIONS (2)
  - Febrile bone marrow aplasia [Recovering/Resolving]
  - Off label use [Unknown]

NARRATIVE: CASE EVENT DATE: 20240328
